FAERS Safety Report 9517452 (Version 1)
Quarter: 2013Q3

REPORT INFORMATION
  Report Type: Spontaneous
  Country: FR (occurrence: FR)
  Receive Date: 20130911
  Receipt Date: 20130911
  Transmission Date: 20140515
  Serious: Yes (Hospitalization)
  Sender: FDA-Public Use
  Company Number: FR-LUNDBECK-DKLU1093591

PATIENT
  Age: 1 Day
  Sex: Male
  Weight: 4 kg

DRUGS (6)
  1. ONFI [Suspect]
     Indication: FOETAL EXPOSURE TIMING UNSPECIFIED
     Route: 064
     Dates: end: 20120306
  2. INSULIN [Suspect]
     Indication: GESTATIONAL DIABETES
     Route: 064
     Dates: end: 20120306
  3. KEPPRA [Suspect]
     Indication: FOETAL EXPOSURE TIMING UNSPECIFIED
     Route: 050
     Dates: end: 20120306
  4. LAMICTAL [Suspect]
     Indication: FOETAL EXPOSURE TIMING UNSPECIFIED
     Route: 064
     Dates: end: 20120306
  5. TRANDATE [Suspect]
     Indication: PRODUCT USED FOR UNKNOWN INDICATION
     Route: 064
     Dates: end: 20120306
  6. LEVOTHYROX [Suspect]
     Indication: FOETAL EXPOSURE TIMING UNSPECIFIED
     Route: 064
     Dates: end: 20120306

REACTIONS (2)
  - Hypoglycaemia neonatal [Recovered/Resolved]
  - Tremor [Recovered/Resolved]
